FAERS Safety Report 4299217-9 (Version None)
Quarter: 2004Q1

REPORT INFORMATION
  Report Type: 
  Country: None (occurrence: None)
  Receive Date: 20040217
  Receipt Date: 20040203
  Transmission Date: 20041129
  Serious: Yes (Hospitalization)
  Sender: FDA-Public Use
  Company Number: NO-JNJFOC-20040200991

PATIENT
  Age: 72 Year
  Sex: Female

DRUGS (7)
  1. REMICADE [Suspect]
     Indication: RHEUMATOID ARTHRITIS
     Dosage: 250 MG INTRAVENOUS
     Route: 042
     Dates: start: 20030213, end: 20030716
  2. ACTIVELLE [Suspect]
     Indication: MENOPAUSAL SYMPTOMS
     Dosage: ORAL
     Route: 048
     Dates: start: 20010801, end: 20030701
  3. METHOTREXATE [Concomitant]
  4. THYROXINE (LEVOTHYROXINE SODIUM) [Concomitant]
  5. PREDNISOLONE [Concomitant]
  6. CALCIGRAN [Concomitant]
  7. PARACET (PARACETAMOL) [Concomitant]

REACTIONS (1)
  - BREAST CANCER [None]
